FAERS Safety Report 26080469 (Version 1)
Quarter: 2025Q4

REPORT INFORMATION
  Report Type: Report from Study
  Country: US (occurrence: US)
  Receive Date: 20251124
  Receipt Date: 20251124
  Transmission Date: 20260119
  Serious: Yes (Hospitalization)
  Sender: ABBVIE
  Company Number: US-ABBVIE-6559451

PATIENT
  Sex: Female

DRUGS (1)
  1. RINVOQ [Suspect]
     Active Substance: UPADACITINIB
     Indication: Rheumatoid arthritis
     Route: 048
     Dates: start: 20240511, end: 2025

REACTIONS (4)
  - Dyspnoea [Unknown]
  - Thrombosis [Recovering/Resolving]
  - Asthenia [Unknown]
  - Peripheral swelling [Unknown]
